FAERS Safety Report 4642054-3 (Version None)
Quarter: 2005Q2

REPORT INFORMATION
  Report Type: 
  Country: None (occurrence: None)
  Receive Date: 20050421
  Receipt Date: 20050330
  Transmission Date: 20051028
  Serious: Yes (Hospitalization)
  Sender: FDA-Public Use
  Company Number: EWC050443400

PATIENT
  Age: 79 Year
  Sex: Female

DRUGS (10)
  1. GEMZAR [Suspect]
     Indication: LUNG NEOPLASM MALIGNANT
     Dosage: 1350 MG OTHER
     Route: 050
     Dates: start: 20050105, end: 20050202
  2. CARBOPLATIN [Concomitant]
  3. THYROXINE SODIUM [Concomitant]
  4. ZYRTEC [Concomitant]
  5. DETRUSITOL (TOLTERODINE L-TARTRATE) [Concomitant]
  6. ALBYL-E [Concomitant]
  7. SELO-ZOK (METOPROLOL SUCCINATE) [Concomitant]
  8. ZOCOR (SIMVASTATIN RTIOPHARM) [Concomitant]
  9. ISMO [Concomitant]
  10. NORVASC [Concomitant]

REACTIONS (9)
  - ALANINE AMINOTRANSFERASE INCREASED [None]
  - BLOOD ALBUMIN DECREASED [None]
  - C-REACTIVE PROTEIN INCREASED [None]
  - FEBRILE NEUTROPENIA [None]
  - GASTRIC ULCER [None]
  - GASTROINTESTINAL HAEMORRHAGE [None]
  - HAEMOGLOBIN DECREASED [None]
  - THROMBOCYTOPENIA [None]
  - WHITE BLOOD CELL AGGLUTINATION PRESENT [None]
